FAERS Safety Report 6341528-7 (Version None)
Quarter: 2009Q3

REPORT INFORMATION
  Report Type: 
  Country: None (occurrence: None)
  Receive Date: 20090904
  Receipt Date: 20090825
  Transmission Date: 20100115
  Serious: Yes (Other)
  Sender: FDA-Public Use
  Company Number: GB-MERCK-0908GBR00076

PATIENT
  Age: 48 Year
  Sex: Male
  Weight: 78 kg

DRUGS (4)
  1. SINGULAIR [Suspect]
     Indication: ASTHMA
     Route: 048
     Dates: start: 20090609
  2. SINGULAIR [Suspect]
     Route: 048
     Dates: start: 20090601, end: 20090601
  3. ALBUTEROL [Concomitant]
  4. FLUTICASONE PROPIONATE AND SALMETEROL XINAFOATE [Concomitant]

REACTIONS (3)
  - APATHY [None]
  - DEPRESSION [None]
  - HALLUCINATION [None]
